FAERS Safety Report 4366039-X (Version None)
Quarter: 2004Q2

REPORT INFORMATION
  Report Type: 
  Country: None (occurrence: None)
  Receive Date: 20040524
  Receipt Date: 20040507
  Transmission Date: 20050107
  Serious: No
  Sender: FDA-Public Use
  Company Number: 2004UW09111

PATIENT
  Age: 57 Year
  Sex: Female

DRUGS (4)
  1. CRESTOR [Suspect]
     Dosage: 20 MG QD PO
     Route: 048
     Dates: start: 20030704, end: 20040503
  2. SYNTHROID [Concomitant]
  3. ESTROGEN [Concomitant]
  4. VITAMINS NOS [Concomitant]

REACTIONS (1)
  - AMNESIA [None]
